FAERS Safety Report 11594912 (Version 2)
Quarter: 2015Q4

REPORT INFORMATION
  Report Type: Spontaneous
  Country: US (occurrence: US)
  Receive Date: 20151005
  Receipt Date: 20151028
  Transmission Date: 20160304
  Serious: Yes (Hospitalization)
  Sender: FDA-Public Use
  Company Number: US-ACTELION-A-NJ2015-115497

PATIENT
  Age: 38 Year
  Sex: Male

DRUGS (3)
  1. VELETRI [Suspect]
     Active Substance: EPOPROSTENOL
     Indication: PULMONARY HYPERTENSION
     Dosage: 11 NG/KG, PER MIN
     Route: 042
     Dates: start: 20150114
  2. XARELTO [Concomitant]
     Active Substance: RIVAROXABAN
  3. FLOLAN [Concomitant]
     Active Substance: EPOPROSTENOL SODIUM

REACTIONS (8)
  - Respiratory distress [Unknown]
  - Fluid overload [Unknown]
  - Pain [Unknown]
  - Loss of consciousness [Unknown]
  - Bradycardia [Unknown]
  - Fluid retention [Unknown]
  - Oedema peripheral [Unknown]
  - Dyspnoea [Unknown]
